FAERS Safety Report 5385157-0 (Version None)
Quarter: 2007Q3

REPORT INFORMATION
  Report Type: 
  Country: None (occurrence: None)
  Receive Date: 20070709
  Receipt Date: 20070628
  Transmission Date: 20080115
  Serious: Yes (Other)
  Sender: FDA-Public Use
  Company Number: 2007SP013070

PATIENT
  Age: 59 Year
  Sex: Female

DRUGS (4)
  1. DIPROPHOS [Suspect]
     Dosage: 1 ML
     Dates: start: 20070619
  2. LIDOCAINE [Suspect]
     Dosage: 2 ML
     Dates: start: 20070619
  3. ELTROXIN [Concomitant]
  4. MARCUMAR [Concomitant]

REACTIONS (1)
  - ERYTHEMA [None]
